FAERS Safety Report 12057978 (Version 1)
Quarter: 2016Q1

REPORT INFORMATION
  Report Type: Spontaneous
  Country: US (occurrence: US)
  Receive Date: 20160209
  Receipt Date: 20160209
  Transmission Date: 20160526
  Serious: No
  Sender: FDA-Public Use
  Company Number: US-ABBVIE-15P-163-1491042-00

PATIENT
  Sex: Male

DRUGS (1)
  1. HUMIRA [Suspect]
     Active Substance: ADALIMUMAB
     Indication: MATERNAL EXPOSURE TIMING UNSPECIFIED
     Route: 064

REACTIONS (5)
  - Selective eating disorder [Recovering/Resolving]
  - Appetite disorder [Recovering/Resolving]
  - Foetal exposure during pregnancy [Unknown]
  - Gastrooesophageal reflux disease [Recovered/Resolved]
  - Poor weight gain neonatal [Recovering/Resolving]

NARRATIVE: CASE EVENT DATE: 201409
